FAERS Safety Report 8619968-2 (Version None)
Quarter: 2012Q3

REPORT INFORMATION
  Report Type: 
  Country: None (occurrence: None)
  Receive Date: 20120824
  Receipt Date: 20120815
  Transmission Date: 20120928
  Serious: Yes (Hospitalization, Other)
  Sender: FDA-Public Use
  Company Number: US-ELI_LILLY_AND_COMPANY-US201208004995

PATIENT
  Age: 53 Year
  Sex: Female

DRUGS (10)
  1. TACROLIMUS [Concomitant]
  2. ANTIFUNGALS [Concomitant]
  3. ZOLOFT [Concomitant]
  4. IMMUNOSUPPRESSANTS [Concomitant]
  5. ANTIVIRALS [Concomitant]
  6. MYCOPHENOLATE MOFETIL (CELLCEPT) [Concomitant]
  7. PREDNISONE TAB [Concomitant]
  8. OLANZAPINE [Suspect]
     Dosage: 5 MG, QD
     Dates: start: 20120724
  9. FLUCONAZOLE [Concomitant]
  10. ACYCLOVIR [Concomitant]

REACTIONS (4)
  - CEREBRAL HAEMORRHAGE [None]
  - RENAL FAILURE [None]
  - GAIT DISTURBANCE [None]
  - STRABISMUS [None]
